FAERS Safety Report 10251969 (Version 1)
Quarter: 2014Q2

REPORT INFORMATION
  Report Type: Spontaneous
  Country: MY (occurrence: None)
  Receive Date: 20140619
  Receipt Date: 20140619
  Transmission Date: 20141212
  Serious: Yes (Hospitalization)
  Sender: FDA-Public Use
  Company Number: CC400222609

PATIENT
  Age: 35 Year
  Sex: Female

DRUGS (2)
  1. CEFUROXIME [Suspect]
     Indication: PELVIC INFLAMMATORY DISEASE
     Route: 042
  2. METRONIDAZOLE [Concomitant]

REACTIONS (8)
  - Substance-induced psychotic disorder [None]
  - Delusion [None]
  - Depressed mood [None]
  - Sleep disorder [None]
  - Feeling guilty [None]
  - Decreased appetite [None]
  - Hallucination, auditory [None]
  - Abnormal behaviour [None]
